FAERS Safety Report 4987024-0 (Version None)
Quarter: 2006Q2

REPORT INFORMATION
  Report Type: 
  Country: None (occurrence: None)
  Receive Date: 20060501
  Receipt Date: 20060418
  Transmission Date: 20061013
  Serious: Yes (Hospitalization)
  Sender: FDA-Public Use
  Company Number: GB-AVENTIS-200612320EU

PATIENT
  Age: 91 Year
  Sex: Male

DRUGS (11)
  1. FUROSEMIDE [Suspect]
     Indication: POLYURIA
     Route: 048
     Dates: end: 20060405
  2. SPIROLACTONE [Suspect]
     Indication: POLYURIA
     Route: 049
     Dates: end: 20060405
  3. DIGOXIN [Suspect]
     Indication: ATRIAL FIBRILLATION
     Route: 048
     Dates: start: 20051201, end: 20060405
  4. AMIODARONE [Suspect]
     Indication: ATRIAL FIBRILLATION
     Route: 048
     Dates: start: 20051201, end: 20060405
  5. ARCOXIA [Suspect]
     Indication: ARTHRITIS
     Route: 048
     Dates: start: 20060201, end: 20060405
  6. COVERSYL [Suspect]
     Indication: BLOOD PRESSURE INCREASED
     Route: 048
     Dates: end: 20060405
  7. CEPHALEXIN [Concomitant]
     Indication: PROPHYLAXIS
     Route: 048
  8. BISOPROLOL [Concomitant]
     Indication: HYPERTENSION
     Route: 048
  9. SALBUTAMOL [Concomitant]
     Indication: OBSTRUCTIVE AIRWAYS DISORDER
     Dosage: DOSE UNIT: UNITS
     Route: 055
  10. ATROVENT [Concomitant]
     Indication: OBSTRUCTIVE AIRWAYS DISORDER
     Dosage: DOSE UNIT: UNITS
     Route: 055
  11. FLIXOTIDE [Concomitant]
     Indication: OBSTRUCTIVE AIRWAYS DISORDER
     Dosage: DOSE UNIT: UNITS
     Route: 055

REACTIONS (7)
  - BLOOD ALKALINE PHOSPHATASE INCREASED [None]
  - BLOOD BILIRUBIN INCREASED [None]
  - CARDIOACTIVE DRUG LEVEL INCREASED [None]
  - DRUG LEVEL INCREASED [None]
  - GAMMA-GLUTAMYLTRANSFERASE INCREASED [None]
  - LIVER FUNCTION TEST ABNORMAL [None]
  - RENAL FAILURE ACUTE [None]
